FAERS Safety Report 15948521 (Version 1)
Quarter: 2019Q1

REPORT INFORMATION
  Report Type: Report from Study
  Country: DE (occurrence: DE)
  Receive Date: 20190212
  Receipt Date: 20190212
  Transmission Date: 20190417
  Serious: Yes (Hospitalization, Other)
  Sender: FDA-Public Use
  Company Number: DE-ACCORD-106008

PATIENT
  Age: 56 Year
  Sex: Male
  Weight: 96.8 kg

DRUGS (6)
  1. TRETINOIN. [Concomitant]
     Active Substance: TRETINOIN
     Dosage: 30 MG, DAILY
     Dates: start: 20170811, end: 20170823
  2. ETOPOSIDE. [Suspect]
     Active Substance: ETOPOSIDE
     Indication: ACUTE MYELOID LEUKAEMIA
     Dosage: 214 MG, DAILY
     Dates: start: 20170803, end: 20170805
  3. CYTARABINE/CYTARABINE HYDROCHLORIDE/CYTARABINE OCFOSFATE [Suspect]
     Active Substance: CYTARABINE
     Indication: ACUTE MYELOID LEUKAEMIA
     Dosage: 214 MG, DAILY
     Dates: start: 20170803, end: 20170807
  4. GEMTUZUMAB [Suspect]
     Active Substance: GEMTUZUMAB OZOGAMICIN
     Indication: ACUTE MYELOID LEUKAEMIA
     Dosage: 6.42 MG, DAILY
     Dates: start: 20170803, end: 20170803
  5. IDARUBICIN [Suspect]
     Active Substance: IDARUBICIN
     Indication: ACUTE MYELOID LEUKAEMIA
     Dates: start: 20170803, end: 20170805
  6. ATRA [Concomitant]
     Active Substance: TRETINOIN
     Dosage: 90 MG, DAILY,ALSO RECEIVED30 MG FROM 11-AUG-2017 TO 23-AUG-2017
     Dates: start: 20170808, end: 20170810

REACTIONS (4)
  - Clostridium difficile infection [Recovered/Resolved]
  - Nausea [Recovered/Resolved]
  - Vomiting [Recovered/Resolved]
  - Diarrhoea [Recovered/Resolved]

NARRATIVE: CASE EVENT DATE: 20170904
